FAERS Safety Report 7350199-2 (Version None)
Quarter: 2011Q1

REPORT INFORMATION
  Report Type: 
  Country: None (occurrence: None)
  Receive Date: 20110314
  Receipt Date: 20110302
  Transmission Date: 20110831
  Serious: Yes (Life-Threatening)
  Sender: FDA-Public Use
  Company Number: B0705582A

PATIENT
  Sex: Female
  Weight: 91 kg

DRUGS (6)
  1. LAPATINIB [Suspect]
     Dosage: 1250MG PER DAY
     Route: 048
     Dates: start: 20110207
  2. IMOVANE [Concomitant]
     Indication: INSOMNIA
     Route: 048
     Dates: start: 20080101
  3. LEVOTHYROXINE [Concomitant]
     Indication: THYROIDECTOMY
     Route: 048
     Dates: start: 20020101
  4. DOCETAXEL [Suspect]
     Route: 042
     Dates: start: 20110207
  5. PIASCLEDINE [Concomitant]
     Route: 048
     Dates: start: 20101201
  6. ALLOPURINOL [Concomitant]
     Route: 048
     Dates: start: 20110101

REACTIONS (1)
  - NEUTROPENIA [None]
